FAERS Safety Report 13922295 (Version 1)
Quarter: 2017Q3

REPORT INFORMATION
  Report Type: Report from Study
  Country: BR (occurrence: BR)
  Receive Date: 20170830
  Receipt Date: 20170830
  Transmission Date: 20171127
  Serious: Yes (Other)
  Sender: FDA-Public Use
  Company Number: BR-ELI_LILLY_AND_COMPANY-BR201707009951

PATIENT
  Age: 65 Year
  Sex: Female

DRUGS (1)
  1. CETUXIMAB. [Suspect]
     Active Substance: CETUXIMAB
     Indication: LARYNGEAL CANCER
     Dosage: 3 VIALS, WEEKLY (1/W)
     Route: 042
     Dates: start: 20170628

REACTIONS (9)
  - Blood pressure decreased [Recovering/Resolving]
  - Weight decreased [Recovering/Resolving]
  - Anxiety [Recovering/Resolving]
  - Alopecia [Unknown]
  - Mucosal inflammation [Unknown]
  - Vomiting [Recovering/Resolving]
  - Asthenia [Unknown]
  - Skin exfoliation [Unknown]
  - Pruritus [Unknown]

NARRATIVE: CASE EVENT DATE: 201707
